FAERS Safety Report 23814317 (Version 1)
Quarter: 2024Q2

REPORT INFORMATION
  Report Type: Spontaneous
  Country: CH (occurrence: CH)
  Receive Date: 20240503
  Receipt Date: 20240503
  Transmission Date: 20240715
  Serious: Yes (Death, Hospitalization, Other)
  Sender: FDA-Public Use
  Company Number: CH-SUN PHARMACEUTICAL INDUSTRIES LTD-2024R1-444036

PATIENT
  Age: 80 Year
  Sex: Male

DRUGS (2)
  1. CEFAZOLIN [Suspect]
     Active Substance: CEFAZOLIN
     Indication: Staphylococcal infection
     Dosage: UNK
     Route: 065
  2. DEXAMETHASONE [Suspect]
     Active Substance: DEXAMETHASONE
     Indication: NSAID exacerbated respiratory disease
     Dosage: UNK
     Route: 065

REACTIONS (8)
  - Pneumonia [Fatal]
  - Cellulitis [Unknown]
  - Condition aggravated [Unknown]
  - COVID-19 [Unknown]
  - Dermatoporosis [Unknown]
  - Osteomyelitis [Unknown]
  - Skin laceration [Unknown]
  - Staphylococcal infection [Unknown]
